FAERS Safety Report 24236339 (Version 1)
Quarter: 2024Q3

REPORT INFORMATION
  Report Type: Spontaneous
  Country: FR (occurrence: FR)
  Receive Date: 20240822
  Receipt Date: 20240822
  Transmission Date: 20241017
  Serious: Yes (Life-Threatening, Other)
  Sender: HIKMA
  Company Number: None

PATIENT

DRUGS (2)
  1. CISPLATIN [Interacting]
     Active Substance: CISPLATIN
     Indication: Transitional cell carcinoma
     Dosage: UNKNOWN
     Route: 042
     Dates: start: 20240430
  2. GEMCITABINE [Interacting]
     Active Substance: GEMCITABINE
     Indication: Transitional cell carcinoma
     Dosage: UNKNOWN
     Route: 042
     Dates: start: 20240507

REACTIONS (3)
  - Septic shock [Recovering/Resolving]
  - Pancytopenia [Recovering/Resolving]
  - Drug interaction [Recovering/Resolving]

NARRATIVE: CASE EVENT DATE: 20240507
